FAERS Safety Report 7564323-X (Version None)
Quarter: 2011Q2

REPORT INFORMATION
  Report Type: 
  Country: None (occurrence: None)
  Receive Date: 20110622
  Receipt Date: 20110609
  Transmission Date: 20111010
  Serious: Yes (Hospitalization, Other)
  Sender: FDA-Public Use
  Company Number: PHHY2011JP29001

PATIENT
  Sex: Male

DRUGS (11)
  1. SORAFENIB TOSILATE [Concomitant]
     Indication: METASTATIC RENAL CELL CARCINOMA
     Dosage: 800 MG, UNK
     Route: 048
     Dates: start: 20100917, end: 20110106
  2. ALLOPURINOL [Concomitant]
     Dosage: 100 MG, UNK
     Dates: start: 20110115
  3. KREMEZIN [Concomitant]
     Dosage: 6 G, UNK
     Route: 048
     Dates: start: 20110115
  4. FLIVAS [Concomitant]
     Dosage: 75 MG, UNK
     Route: 048
     Dates: start: 20110115
  5. OXYCONTIN [Concomitant]
     Indication: METASTATIC RENAL CELL CARCINOMA
     Dosage: 15 MG, UNK
     Dates: start: 20110115
  6. NAUZELIN [Concomitant]
     Dosage: 30 MG, UNK
     Dates: start: 20110115
  7. TAGAMET [Concomitant]
     Dosage: 800 MG, UNK
     Dates: start: 20110115
  8. AFINITOR [Suspect]
     Indication: METASTATIC RENAL CELL CARCINOMA
     Dosage: 5 MG, DAILY
     Route: 048
     Dates: start: 20110115, end: 20110121
  9. TECELEUKIN [Concomitant]
     Indication: METASTATIC RENAL CELL CARCINOMA
     Dosage: 700000 IU, UNK
     Dates: start: 20080409, end: 20100827
  10. INTERFERON ALFA [Concomitant]
     Indication: METASTATIC RENAL CELL CARCINOMA
     Dosage: 6000000 IU, UNK
     Dates: start: 20071221, end: 20080318
  11. ACETAMINOPHEN [Concomitant]
     Indication: METASTATIC RENAL CELL CARCINOMA
     Dosage: 1800 MG, UNK
     Dates: start: 20110115

REACTIONS (4)
  - MENTAL DISORDER [None]
  - C-REACTIVE PROTEIN INCREASED [None]
  - HYPERCALCAEMIA [None]
  - GAMMA-GLUTAMYLTRANSFERASE INCREASED [None]
